FAERS Safety Report 11839140 (Version 6)
Quarter: 2016Q1

REPORT INFORMATION
  Report Type: Spontaneous
  Country: TW (occurrence: TW)
  Receive Date: 20151216
  Receipt Date: 20160316
  Transmission Date: 20160525
  Serious: Yes (Hospitalization, Other)
  Sender: FDA-Public Use
  Company Number: TW-AMGEN-TWNSP2015133620

PATIENT
  Age: 63 Year
  Sex: Male

DRUGS (6)
  1. CELEBREX [Concomitant]
     Active Substance: CELECOXIB
     Indication: RHEUMATOID ARTHRITIS
     Dosage: 200 MG, 2X/DAY
     Route: 048
  2. ENBREL [Suspect]
     Active Substance: ETANERCEPT
     Indication: RHEUMATOID ARTHRITIS
     Dosage: 25 MG, 2X/WEEK
     Route: 058
     Dates: start: 20090216
  3. ENBREL [Suspect]
     Active Substance: ETANERCEPT
     Dosage: 25 MG X 7 DOSAGES PER MONTH (EVERY 4 OR 5 DAYS)
     Route: 058
  4. SALAZOPYRIN [Concomitant]
     Active Substance: SULFASALAZINE
     Indication: RHEUMATOID ARTHRITIS
     Dosage: 1 DF, 3X/DAY
     Route: 048
  5. PREDNISOLON                        /00016201/ [Concomitant]
     Active Substance: PREDNISOLONE
     Indication: RHEUMATOID ARTHRITIS
     Dosage: 5 MG, 2X/DAY
     Route: 048
  6. STROCAIN                           /00130301/ [Concomitant]
     Indication: GASTRIC ULCER
     Dosage: 1 DF, 3X/DAY
     Route: 048

REACTIONS (7)
  - Liver function test increased [Recovered/Resolved]
  - Fatigue [Recovered/Resolved]
  - Disease recurrence [Not Recovered/Not Resolved]
  - Hepatitis C virus test positive [Unknown]
  - Hepatitis C [Not Recovered/Not Resolved]
  - Condition aggravated [Recovered/Resolved]
  - Hepatitis C [Recovered/Resolved]

NARRATIVE: CASE EVENT DATE: 201602
